FAERS Safety Report 18471708 (Version 1)
Quarter: 2020Q4

REPORT INFORMATION
  Report Type: Spontaneous
  Country: BR (occurrence: BR)
  Receive Date: 20201106
  Receipt Date: 20201106
  Transmission Date: 20210114
  Serious: Yes (Other)
  Sender: FDA-Public Use
  Company Number: BR-TEVA-2020-BR-1846611

PATIENT
  Age: 53 Year
  Sex: Female

DRUGS (1)
  1. TEVAOXALI [Suspect]
     Active Substance: OXALIPLATIN
     Route: 065

REACTIONS (3)
  - Erythema [Recovered/Resolved]
  - Oxygen saturation decreased [Recovered/Resolved]
  - Dyspnoea [Recovered/Resolved]

NARRATIVE: CASE EVENT DATE: 20201027
